FAERS Safety Report 13994003 (Version 1)
Quarter: 2017Q3

REPORT INFORMATION
  Report Type: Spontaneous
  Country: US (occurrence: US)
  Receive Date: 20170920
  Receipt Date: 20170920
  Transmission Date: 20171128
  Serious: Yes (Other)
  Sender: FDA-Public Use
  Company Number: US-GILEAD-2017-0293810

PATIENT
  Age: 62 Year
  Sex: Male

DRUGS (2)
  1. ENTECAVIR. [Concomitant]
     Active Substance: ENTECAVIR
     Indication: HEPATITIS B
     Route: 065
  2. HARVONI [Suspect]
     Active Substance: LEDIPASVIR\SOFOSBUVIR
     Indication: HEPATITIS C
     Dosage: UNK
     Route: 065
     Dates: start: 20170208, end: 20170404

REACTIONS (4)
  - Hepatitis B e antibody positive [Unknown]
  - Hepatitis B surface antigen positive [Recovered/Resolved]
  - Hepatitis B antibody positive [Unknown]
  - Hepatitis B DNA increased [Recovered/Resolved]
